FAERS Safety Report 14313897 (Version 1)
Quarter: 2017Q4

REPORT INFORMATION
  Report Type: Spontaneous
  Country: DE (occurrence: DE)
  Receive Date: 20171221
  Receipt Date: 20171221
  Transmission Date: 20180321
  Serious: Yes (Death, Life-Threatening, Other)
  Sender: FDA-Public Use
  Company Number: DE-JUBILANT CADISTA PHARMACEUTICALS-2017JUB00429

PATIENT
  Age: 41 Year
  Sex: Male

DRUGS (3)
  1. TRIMIPRAMINE [Suspect]
     Active Substance: TRIMIPRAMINE
     Route: 065
  2. OLANZAPINE. [Suspect]
     Active Substance: OLANZAPINE
     Route: 065
  3. 5F-ABD [Suspect]
     Active Substance: 5-FLUORO-ADB, (+/-)-
     Route: 065

REACTIONS (9)
  - Brain oedema [None]
  - Toxicity to various agents [Not Recovered/Not Resolved]
  - Vomiting [None]
  - Aspiration [Fatal]
  - Petechiae [None]
  - Coma [Not Recovered/Not Resolved]
  - Pulmonary oedema [None]
  - Drug interaction [Not Recovered/Not Resolved]
  - Pulmonary haemorrhage [None]

NARRATIVE: CASE EVENT DATE: 201602
